FAERS Safety Report 16599384 (Version 2)
Quarter: 2019Q3

REPORT INFORMATION
  Report Type: Spontaneous
  Country: JP (occurrence: JP)
  Receive Date: 20190719
  Receipt Date: 20190729
  Transmission Date: 20191004
  Serious: Yes (Other)
  Sender: FDA-Public Use
  Company Number: JP-FERRINGPH-2019FE04456

PATIENT
  Age: 9 Year
  Sex: Female

DRUGS (1)
  1. MINIRINMELT [Suspect]
     Active Substance: DESMOPRESSIN ACETATE
     Indication: DIABETES INSIPIDUS
     Dosage: 4 DF, UNK
     Route: 060

REACTIONS (1)
  - Ileus [Unknown]

NARRATIVE: CASE EVENT DATE: 201907
